FAERS Safety Report 19299945 (Version 1)
Quarter: 2021Q2

REPORT INFORMATION
  Report Type: Spontaneous
  Country: GB (occurrence: GB)
  Receive Date: 20210525
  Receipt Date: 20210525
  Transmission Date: 20210717
  Serious: Yes (Other)
  Sender: FDA-Public Use
  Company Number: GB-BAUSCH-BL-2014-007301

PATIENT
  Age: 45 Year
  Sex: Male

DRUGS (2)
  1. FLUORESCEIN SODIUM. [Suspect]
     Active Substance: FLUORESCEIN SODIUM
     Indication: INTRAOCULAR PRESSURE TEST
     Route: 061
  2. PROXYMETACAINE [Suspect]
     Active Substance: PROPARACAINE HYDROCHLORIDE
     Indication: INTRAOCULAR PRESSURE TEST
     Route: 061

REACTIONS (1)
  - Loss of consciousness [Recovered/Resolved]
